FAERS Safety Report 6402244-6 (Version None)
Quarter: 2009Q4

REPORT INFORMATION
  Report Type: 
  Country: None (occurrence: None)
  Receive Date: 20091014
  Receipt Date: 20091014
  Transmission Date: 20100525
  Serious: Yes (Disabling)
  Sender: FDA-Public Use
  Company Number: None

PATIENT
  Age: 49 Year
  Sex: Female
  Weight: 68.0396 kg

DRUGS (2)
  1. LEVAQUIN [Suspect]
     Indication: PARAESTHESIA
     Dosage: 750MG ONE QD   5X OVER 1YR
     Dates: start: 20080901, end: 20090901
  2. CIPRO [Suspect]
     Dosage: 250MG ONE PO BID
     Route: 048

REACTIONS (5)
  - MUSCLE DISORDER [None]
  - MUSCLE TWITCHING [None]
  - NEUROLOGICAL SYMPTOM [None]
  - PARAESTHESIA [None]
  - RASH GENERALISED [None]
